FAERS Safety Report 4316226-1 (Version None)
Quarter: 2004Q1

REPORT INFORMATION
  Report Type: 
  Country: None (occurrence: None)
  Receive Date: 20040312
  Receipt Date: 20011025
  Transmission Date: 20041129
  Serious: Yes (Hospitalization, Disabling)
  Sender: FDA-Public Use
  Company Number: WAES 01104484

PATIENT
  Age: 48 Year
  Sex: Female
  Weight: 55 kg

DRUGS (6)
  1. CELEBREX [Concomitant]
     Dates: start: 19990701, end: 19990701
  2. FEMHRT [Concomitant]
     Indication: MENOPAUSAL SYMPTOMS
  3. HERBS (UNSPECIFIED) [Concomitant]
  4. ANAPROX [Concomitant]
     Dates: start: 19990501
  5. VIOXX [Suspect]
     Indication: ARTHRALGIA
     Route: 048
     Dates: start: 19990701, end: 20020101
  6. VIOXX [Suspect]
     Indication: POLYMYALGIA
     Route: 048
     Dates: start: 19990701, end: 20020101

REACTIONS (56)
  - ACOUSTIC STIMULATION TESTS ABNORMAL [None]
  - AMNESIA [None]
  - ASTHENIA [None]
  - BLINDNESS [None]
  - BLOOD PRESSURE FLUCTUATION [None]
  - CARDIAC DISORDER [None]
  - CARDIOVASCULAR DISORDER [None]
  - CHRONIC FATIGUE SYNDROME [None]
  - CLAVICLE FRACTURE [None]
  - COCCIDIOIDOMYCOSIS [None]
  - COGNITIVE DISORDER [None]
  - CSF TEST ABNORMAL [None]
  - DEMENTIA [None]
  - DIZZINESS [None]
  - DRUG INEFFECTIVE [None]
  - DYSSTASIA [None]
  - ECZEMA ASTEATOTIC [None]
  - ELECTROENCEPHALOGRAM ABNORMAL [None]
  - EMOTIONAL DISTRESS [None]
  - ENCEPHALITIS [None]
  - ENDOCARDITIS [None]
  - FALL [None]
  - FATIGUE [None]
  - FEELING JITTERY [None]
  - FIBROMYALGIA [None]
  - FRACTURE [None]
  - GASTROOESOPHAGEAL REFLUX DISEASE [None]
  - GRAND MAL CONVULSION [None]
  - HEADACHE [None]
  - INJURY [None]
  - INSOMNIA [None]
  - IRITIS [None]
  - JOINT DISLOCATION [None]
  - JOINT INJURY [None]
  - KERATOCONJUNCTIVITIS SICCA [None]
  - LACRIMATION INCREASED [None]
  - LIMB INJURY [None]
  - MALAISE [None]
  - MENINGITIS [None]
  - MIGRAINE [None]
  - MITRAL VALVE PROLAPSE [None]
  - MOTOR DYSFUNCTION [None]
  - MYOCARDITIS [None]
  - NAUSEA [None]
  - NIGHT SWEATS [None]
  - OEDEMA [None]
  - PARAESTHESIA [None]
  - PHOTOSENSITIVITY REACTION [None]
  - PULMONARY CALCIFICATION [None]
  - RENAL FAILURE [None]
  - STOMATITIS [None]
  - TUNNEL VISION [None]
  - UPPER RESPIRATORY TRACT INFECTION [None]
  - VERTIGO [None]
  - VIRAL INFECTION [None]
  - VOMITING [None]
